FAERS Safety Report 9437388 (Version 2)
Quarter: 2013Q3

REPORT INFORMATION
  Report Type: Spontaneous
  Country: SE (occurrence: None)
  Receive Date: 20130731
  Receipt Date: 20130815
  Transmission Date: 20140515
  Serious: Yes (Hospitalization)
  Sender: FDA-Public Use
  Company Number: SYM-2013-07325

PATIENT
  Age: 43 Year
  Sex: Female

DRUGS (2)
  1. VOXRA [Suspect]
     Indication: PRODUCT USED FOR UNKNOWN INDICATION
     Dates: start: 20130716, end: 20130716
  2. SOBRIL (OXAZEPAM) (OXAZEPAM) [Concomitant]

REACTIONS (2)
  - Convulsion [None]
  - Off label use [None]
